FAERS Safety Report 7476093-4 (Version None)
Quarter: 2011Q2

REPORT INFORMATION
  Report Type: 
  Country: None (occurrence: None)
  Receive Date: 20110512
  Receipt Date: 20110509
  Transmission Date: 20111010
  Serious: Yes (Hospitalization)
  Sender: FDA-Public Use
  Company Number: FR-BRISTOL-MYERS SQUIBB COMPANY-15734148

PATIENT
  Age: 83 Year
  Sex: Female

DRUGS (4)
  1. HYDREA [Suspect]
     Route: 048
     Dates: start: 20051001, end: 20080301
  2. SPRYCEL [Suspect]
     Indication: CHRONIC MYELOID LEUKAEMIA
     Dates: start: 20091201
  3. GLEEVEC [Suspect]
     Dates: start: 20021101, end: 20051001
  4. TASIGNA [Suspect]
     Dates: start: 20080301, end: 20091201

REACTIONS (1)
  - BREAST CANCER [None]
